FAERS Safety Report 12350472 (Version 1)
Quarter: 2016Q2

REPORT INFORMATION
  Report Type: Spontaneous
  Country: GB (occurrence: GB)
  Receive Date: 20160510
  Receipt Date: 20160510
  Transmission Date: 20160815
  Serious: Yes (Disabling, Other)
  Sender: FDA-Public Use
  Company Number: GB-GLAXOSMITHKLINE-GB2016062918

PATIENT
  Age: 37 Year
  Sex: Male
  Weight: 79 kg

DRUGS (1)
  1. MALARONE [Suspect]
     Active Substance: ATOVAQUONE\PROGUANIL HYDROCHLORIDE
     Indication: FOREIGN TRAVEL
     Dosage: 1 TABLET TAKEN.
     Route: 048
     Dates: start: 20160416, end: 20160416

REACTIONS (4)
  - Dizziness [Not Recovered/Not Resolved]
  - Malaise [Not Recovered/Not Resolved]
  - Vertigo [Not Recovered/Not Resolved]
  - Hallucination [Recovering/Resolving]

NARRATIVE: CASE EVENT DATE: 20160416
